FAERS Safety Report 24444229 (Version 2)
Quarter: 2024Q4

REPORT INFORMATION
  Report Type: Report from Study
  Country: US (occurrence: US)
  Receive Date: 20241016
  Receipt Date: 20241017
  Transmission Date: 20250114
  Serious: No
  Sender: ROCHE
  Company Number: US-ROCHE-2785164

PATIENT
  Age: 36 Year
  Sex: Female
  Weight: 63.5 kg

DRUGS (2)
  1. RITUXAN [Suspect]
     Active Substance: RITUXIMAB
     Indication: Multiple sclerosis
     Route: 042
     Dates: start: 201811, end: 201811
  2. OCREVUS [Suspect]
     Active Substance: OCRELIZUMAB
     Indication: Relapsing-remitting multiple sclerosis
     Dosage: ONGOING: UNKNOWN DAY 0 300MG DAY 14 300MG, 600MG EVERY 6 MONTHS, DATE OF MOST RECENT INFUSION : 17/O
     Route: 042

REACTIONS (4)
  - Fatigue [Recovered/Resolved]
  - Maternal exposure during pregnancy [Unknown]
  - Tachycardia [Recovered/Resolved]
  - Throat tightness [Recovered/Resolved]

NARRATIVE: CASE EVENT DATE: 20221001
